FAERS Safety Report 25078917 (Version 1)
Quarter: 2025Q1

REPORT INFORMATION
  Report Type: Spontaneous
  Country: IE (occurrence: IE)
  Receive Date: 20250314
  Receipt Date: 20250314
  Transmission Date: 20250409
  Serious: Yes (Disabling, Other)
  Sender: ASCEND THERAPEUTICS US, LLC
  Company Number: IE-Ascend Therapeutics US, LLC-2172873

PATIENT
  Age: 51 Year
  Sex: Female

DRUGS (3)
  1. ESTROGEL [Suspect]
     Active Substance: ESTRADIOL
     Indication: Hormone replacement therapy
     Dates: start: 20240827
  2. ESTRADIOL [Suspect]
     Active Substance: ESTRADIOL
     Dates: start: 20240827
  3. ESTRADIOL [Suspect]
     Active Substance: ESTRADIOL
     Dates: start: 20250131

REACTIONS (7)
  - Palpitations [Recovered/Resolved]
  - Product dispensing error [Recovered/Resolved]
  - Incorrect dose administered [Recovered/Resolved]
  - Anxiety [Recovered/Resolved]
  - Abdominal discomfort [Recovered/Resolved]
  - Sympathomimetic effect [Recovered/Resolved]
  - Heart rate increased [Recovered/Resolved]

NARRATIVE: CASE EVENT DATE: 20250201
